FAERS Safety Report 11442022 (Version 2)
Quarter: 2015Q3

REPORT INFORMATION
  Report Type: Spontaneous
  Country: US (occurrence: US)
  Receive Date: 20150901
  Receipt Date: 20150923
  Transmission Date: 20151125
  Serious: No
  Sender: FDA-Public Use
  Company Number: US-009507513-1508USA013997

PATIENT
  Sex: Female
  Weight: 48.98 kg

DRUGS (1)
  1. NUVARING [Suspect]
     Active Substance: ETHINYL ESTRADIOL\ETONOGESTREL
     Dosage: 3 WEEKS IN AND 1 WEEK OUT
     Route: 067
     Dates: start: 201402

REACTIONS (1)
  - Device expulsion [Unknown]
